FAERS Safety Report 9038576 (Version 1)
Quarter: 2013Q1

REPORT INFORMATION
  Report Type: Spontaneous
  Country: US (occurrence: US)
  Receive Date: 20130129
  Receipt Date: 20130129
  Transmission Date: 20140127
  Serious: Yes (Hospitalization)
  Sender: FDA-Public Use
  Company Number: US-MYLANLABS-2013S1001391

PATIENT
  Age: 59 Year
  Sex: Female

DRUGS (16)
  1. METFORMIN [Suspect]
     Indication: TYPE 2 DIABETES MELLITUS
     Dosage: INCREASED BY 500MG EVERY 3-5D, AS TOLERATED, TO A MAXIMUM OF 1000MG TWICE DAILY
     Route: 065
  2. METFORMIN [Suspect]
     Indication: TYPE 2 DIABETES MELLITUS
     Dosage: RECEIVED FOR A ^FEW DAYS^
     Route: 065
  3. LEVOTHYROXINE SODIUM [Concomitant]
     Route: 065
  4. INSULIN DETEMIR [Concomitant]
     Route: 065
  5. INSULIN ASPART [Concomitant]
     Route: 065
  6. ALENDRONIC ACID [Concomitant]
     Route: 065
  7. ASPIRIN [Concomitant]
     Route: 065
  8. LISINOPRIL [Concomitant]
     Route: 065
  9. SIMVASTATIN [Concomitant]
     Route: 065
  10. CYANOCOBALAMIN [Concomitant]
     Route: 048
  11. CITALOPRAM [Concomitant]
     Route: 065
  12. PROMETHAZINE [Concomitant]
     Route: 065
  13. LORAZEPAM [Concomitant]
     Route: 065
  14. PROCET                             /01554201/ [Concomitant]
     Route: 065
  15. ASCORBIC ACID [Concomitant]
     Route: 065
  16. CALCIUM WITH VITAMIN D [Concomitant]
     Route: 065

REACTIONS (2)
  - Pancreatitis chronic [Recovered/Resolved]
  - Condition aggravated [Recovered/Resolved]
